FAERS Safety Report 25900962 (Version 2)
Quarter: 2025Q4

REPORT INFORMATION
  Report Type: Report from Study
  Country: CO (occurrence: CO)
  Receive Date: 20251009
  Receipt Date: 20251014
  Transmission Date: 20260118
  Serious: Yes (Hospitalization)
  Sender: EISAI
  Company Number: CO-Eisai-EC-2025-196421

PATIENT
  Age: 70 Year
  Sex: Female
  Weight: 57.00 kg

DRUGS (1)
  1. HALAVEN [Suspect]
     Active Substance: ERIBULIN MESYLATE
     Indication: Triple negative breast cancer
     Dosage: FREQUENCY: DAY 1 AND DAY 8 CYCLE EVERY 21 DAYS
     Route: 042

REACTIONS (5)
  - Platelet count decreased [Unknown]
  - Alopecia [Unknown]
  - Hypoacusis [Unknown]
  - Hyposmia [Unknown]
  - Visual impairment [Unknown]

NARRATIVE: CASE EVENT DATE: 20250101
